FAERS Safety Report 8593756-8 (Version None)
Quarter: 2012Q3

REPORT INFORMATION
  Report Type: 
  Country: None (occurrence: None)
  Receive Date: 20120814
  Receipt Date: 20120803
  Transmission Date: 20120928
  Serious: No
  Sender: FDA-Public Use
  Company Number: US-ASTRAZENECA-2012SE55063

PATIENT
  Age: 34 Year
  Sex: Female

DRUGS (1)
  1. PULMICORT FLEXHALER [Suspect]
     Route: 055
     Dates: start: 20120301

REACTIONS (3)
  - RESPIRATORY DISORDER [None]
  - DRUG DOSE OMISSION [None]
  - DYSPNOEA [None]
